FAERS Safety Report 4464802-8 (Version None)
Quarter: 2004Q3

REPORT INFORMATION
  Report Type: 
  Country: None (occurrence: None)
  Receive Date: 20040928
  Receipt Date: 20040928
  Transmission Date: 20050211
  Serious: Yes (Hospitalization)
  Sender: FDA-Public Use
  Company Number: None

PATIENT
  Age: 87 Year
  Sex: Male
  Weight: 67.1 kg

DRUGS (12)
  1. ENALAPRIL MALEATE [Suspect]
     Indication: HYPERTENSION
     Dosage: 20 MG BID ORAL
     Route: 048
     Dates: start: 20040202, end: 20040615
  2. SOLU-MEDROL [Concomitant]
  3. ALBUTEROL [Concomitant]
  4. ATROVENT [Concomitant]
  5. THEOPHYLLINE [Concomitant]
  6. HYDRALAZINE HCL [Concomitant]
  7. OXYCODONE HCL [Concomitant]
  8. TERAZOSIN HCL [Concomitant]
  9. ROCEPHIN [Concomitant]
  10. AZITHROMYCIN [Concomitant]
  11. THEOPHYLLINE [Concomitant]
  12. AUGMENTIN [Concomitant]

REACTIONS (1)
  - RENAL FAILURE ACUTE [None]
